FAERS Safety Report 7647154-1 (Version None)
Quarter: 2011Q3

REPORT INFORMATION
  Report Type: 
  Country: None (occurrence: None)
  Receive Date: 20110801
  Receipt Date: 20110721
  Transmission Date: 20111222
  Serious: Yes (Other)
  Sender: FDA-Public Use
  Company Number: US-ROCHE-735748

PATIENT
  Sex: Male
  Weight: 65.3 kg

DRUGS (3)
  1. GUAIFENESIN [Concomitant]
     Dosage: EVERY FEB 1-2 WEEKS
     Dates: start: 19890101, end: 19970101
  2. ACCUTANE [Suspect]
     Indication: ACNE
     Route: 065
     Dates: start: 19951106, end: 19960331
  3. ALBUTEROL SULFATE AUTOHALER [Concomitant]
     Dosage: EVERY FEB FOR 1-2 WEEKS.
     Dates: start: 19890101, end: 19970101

REACTIONS (5)
  - ANXIETY [None]
  - COLITIS ULCERATIVE [None]
  - INFLAMMATORY BOWEL DISEASE [None]
  - CROHN'S DISEASE [None]
  - GASTROINTESTINAL INJURY [None]
